FAERS Safety Report 23206259 (Version 1)
Quarter: 2023Q4

REPORT INFORMATION
  Report Type: Spontaneous
  Country: GB (occurrence: GB)
  Receive Date: 20231120
  Receipt Date: 20231120
  Transmission Date: 20240109
  Serious: Yes (Other)
  Sender: FDA-Public Use
  Company Number: GB-TORRENT-00033772

PATIENT
  Sex: Male
  Weight: 92.1 kg

DRUGS (8)
  1. FAMOTIDINE [Interacting]
     Active Substance: FAMOTIDINE
     Indication: Product used for unknown indication
     Dosage: 40 MILLIGRAM DAILY; 2 X 20 MG DAILY INITIAL DOSE BY MOUTH
     Route: 048
  2. LANSOPRAZOLE [Interacting]
     Active Substance: LANSOPRAZOLE
     Indication: Product used for unknown indication
     Dosage: UNKNOWN, UNIT DOSE: 15MG, DURATION: 29 DAYS
     Route: 048
     Dates: start: 20230830, end: 20230928
  3. ATORVASTATIN CALCIUM TRIHYDRATE [Interacting]
     Active Substance: ATORVASTATIN CALCIUM TRIHYDRATE
     Indication: Product used for unknown indication
     Dosage: UNKNOWN
     Route: 048
  4. CLOPIDOGREL BISULFATE [Interacting]
     Active Substance: CLOPIDOGREL BISULFATE
     Indication: Cerebrovascular accident
     Dosage: FOLLOWED BY A DAILY TABLET OF 75MG, FREQUENCY: EVERY 4 DAYS
     Route: 048
     Dates: start: 20230824
  5. ALLOPURINOL [Concomitant]
     Active Substance: ALLOPURINOL
     Indication: Gout
     Dosage: 200 MILLIGRAM DAILY; 200 MG DAILY
     Route: 048
  6. ALLOPURINOL [Concomitant]
     Active Substance: ALLOPURINOL
     Indication: Osteoarthritis
  7. BISOPROLOL [Concomitant]
     Active Substance: BISOPROLOL\BISOPROLOL FUMARATE
     Indication: Vascular graft
     Dosage: 2.5 MG DAILY ABOUT 10 YEARS, UNIT DOSE: 3MG, FREQUENCY TIME: 1 DAYS
     Route: 065
  8. QUININE SULFATE [Concomitant]
     Active Substance: QUININE SULFATE
     Indication: Muscle spasms
     Dosage: UNIT DOSE: 200MG
     Route: 048

REACTIONS (2)
  - Dyspepsia [Recovered/Resolved]
  - Drug interaction [Unknown]

NARRATIVE: CASE EVENT DATE: 20230823
